FAERS Safety Report 8354993-0 (Version None)
Quarter: 2012Q2

REPORT INFORMATION
  Report Type: 
  Country: None (occurrence: None)
  Receive Date: 20120511
  Receipt Date: 20120508
  Transmission Date: 20120825
  Serious: Yes (Death, Hospitalization)
  Sender: FDA-Public Use
  Company Number: DE-TEVA-337241USA

PATIENT
  Sex: Female
  Weight: 63 kg

DRUGS (1)
  1. TREANDA [Suspect]
     Indication: LYMPHATIC SYSTEM NEOPLASM
     Dosage: DAY 1 AND 2 EVEY FOUR WEEKS
     Route: 042
     Dates: start: 20120201, end: 20120212

REACTIONS (3)
  - PNEUMONIA [None]
  - INFECTION [None]
  - OFF LABEL USE [None]
